FAERS Safety Report 24216901 (Version 1)
Quarter: 2024Q3

REPORT INFORMATION
  Report Type: Spontaneous
  Country: US (occurrence: US)
  Receive Date: 20240816
  Receipt Date: 20240816
  Transmission Date: 20241017
  Serious: Yes (Life-Threatening, Hospitalization)
  Sender: MYLAN
  Company Number: US-MYLANLABS-2024M1074811

PATIENT
  Age: 16 Year
  Sex: Female

DRUGS (9)
  1. HYDROCORTISONE [Interacting]
     Active Substance: HYDROCORTISONE\HYDROCORTISONE ACETATE
     Indication: Hormone replacement therapy
     Dosage: 5 MILLIGRAM, TID
     Route: 065
  2. HYDROCORTISONE [Interacting]
     Active Substance: HYDROCORTISONE\HYDROCORTISONE ACETATE
     Dosage: UNK (DOSE INCREASED)
     Route: 065
  3. HYDROCORTISONE [Interacting]
     Active Substance: HYDROCORTISONE\HYDROCORTISONE ACETATE
     Dosage: UNK (DECREASED)
     Route: 065
  4. HYDROCORTISONE [Interacting]
     Active Substance: HYDROCORTISONE\HYDROCORTISONE ACETATE
     Dosage: UNK (MAINTIANED)
     Route: 065
  5. MITOTANE [Interacting]
     Active Substance: MITOTANE
     Indication: Adrenocortical carcinoma
     Dosage: UNK
     Route: 065
  6. FLUDROCORTISONE [Concomitant]
     Active Substance: FLUDROCORTISONE
     Indication: Hormone replacement therapy
     Dosage: 0.1 MILLIGRAM, QD
     Route: 065
  7. CISPLATIN [Concomitant]
     Active Substance: CISPLATIN
     Indication: Adrenocortical carcinoma
     Dosage: UNK
     Route: 065
  8. ETOPOSIDE [Concomitant]
     Active Substance: ETOPOSIDE
     Indication: Adrenocortical carcinoma
     Dosage: UNK
     Route: 065
  9. DOXORUBICIN [Concomitant]
     Active Substance: DOXORUBICIN
     Indication: Adrenocortical carcinoma
     Dosage: UNK
     Route: 065

REACTIONS (2)
  - Drug interaction [Recovering/Resolving]
  - Adrenocortical insufficiency acute [Recovering/Resolving]
